FAERS Safety Report 8019609-1 (Version None)
Quarter: 2012Q1

REPORT INFORMATION
  Report Type: 
  Country: None (occurrence: None)
  Receive Date: 20120103
  Receipt Date: 20111221
  Transmission Date: 20120608
  Serious: Yes (Hospitalization)
  Sender: FDA-Public Use
  Company Number: US-GLAXOSMITHKLINE-A0917005A

PATIENT
  Age: 73 Year
  Sex: Female
  Weight: 81.4 kg

DRUGS (7)
  1. ATENOLOL [Concomitant]
  2. AVANDIA [Suspect]
     Indication: DIABETES MELLITUS
     Dosage: 4MG PER DAY
     Route: 048
     Dates: end: 20060101
  3. PREVACID [Concomitant]
  4. LIPITOR [Concomitant]
  5. SYNTHROID [Concomitant]
  6. LOTENSIN [Concomitant]
  7. GLUCOPHAGE [Concomitant]

REACTIONS (1)
  - MYOCARDIAL INFARCTION [None]
